FAERS Safety Report 4517574-2 (Version None)
Quarter: 2004Q4

REPORT INFORMATION
  Report Type: 
  Country: None (occurrence: None)
  Receive Date: 20041130
  Receipt Date: 20041117
  Transmission Date: 20050328
  Serious: Yes (Hospitalization)
  Sender: FDA-Public Use
  Company Number: A-CH2004-04330

PATIENT
  Age: 65 Year
  Sex: Female

DRUGS (9)
  1. TRACLEER [Suspect]
     Indication: SCLERODERMA
     Dosage: SEE IMAGE
     Route: 048
     Dates: start: 20031010, end: 20031102
  2. TRACLEER [Suspect]
     Indication: SCLERODERMA
     Dosage: SEE IMAGE
     Route: 048
     Dates: start: 20031103
  3. TORENTAL (PENTOXIFYLLINE) [Concomitant]
  4. ZESTRIL [Concomitant]
  5. OMEPRAZOLE [Concomitant]
  6. FONZYLANE (BUFLOMEDIL HYDROCHLORIDE) [Concomitant]
  7. DILTIAZEM HCL [Concomitant]
  8. QVAR (BECLOMETASONE DIPROPIONATE) [Concomitant]
  9. PLASCLEDINE (PERSEAE OLEUM, SOYA OIL) [Concomitant]

REACTIONS (9)
  - ALANINE AMINOTRANSFERASE INCREASED [None]
  - ASPARTATE AMINOTRANSFERASE INCREASED [None]
  - DRUG INEFFECTIVE [None]
  - FINGER AMPUTATION [None]
  - GAMMA-GLUTAMYLTRANSFERASE INCREASED [None]
  - HAND AMPUTATION [None]
  - NECROSIS [None]
  - OFF LABEL USE [None]
  - TOE AMPUTATION [None]
